FAERS Safety Report 18446671 (Version 3)
Quarter: 2020Q4

REPORT INFORMATION
  Report Type: Spontaneous
  Country: US (occurrence: US)
  Receive Date: 20201030
  Receipt Date: 20201221
  Transmission Date: 20210114
  Serious: Yes (Death, Other)
  Sender: FDA-Public Use
  Company Number: US-COHERUS BIOSCIENCES, INC-2020US006540

PATIENT

DRUGS (7)
  1. PREDNISONE. [Concomitant]
     Active Substance: PREDNISONE
     Dosage: UNK, CYCLIC
     Dates: start: 20201007, end: 20201007
  2. RITUXAN [Concomitant]
     Active Substance: RITUXIMAB
     Dosage: UNK, CYCLIC
     Dates: start: 20201006, end: 20201006
  3. DOXORUBICIN [Concomitant]
     Active Substance: DOXORUBICIN
     Dosage: UNK, CYCLIC
     Dates: start: 20201007, end: 20201007
  4. TAFASITAMAB [Concomitant]
     Active Substance: TAFASITAMAB
     Dosage: UNK, CYCLIC
     Dates: start: 20201006
  5. CYCLOPHOSPHAMIDE. [Concomitant]
     Active Substance: CYCLOPHOSPHAMIDE
     Dosage: UNK, CYCLIC
     Dates: start: 20201007, end: 20201007
  6. ONCOVIN [Concomitant]
     Active Substance: VINCRISTINE SULFATE
     Dosage: UNK, CYCLIC
     Dates: start: 20201007, end: 20201007
  7. UDENYCA [Suspect]
     Active Substance: PEGFILGRASTIM-CBQV
     Indication: INFECTION PROPHYLAXIS
     Dosage: 6 MG/0.6 ML
     Route: 058
     Dates: start: 20201007, end: 20201007

REACTIONS (2)
  - Sepsis [Fatal]
  - Intentional product use issue [Unknown]

NARRATIVE: CASE EVENT DATE: 20201021
